FAERS Safety Report 18415646 (Version 1)
Quarter: 2020Q4

REPORT INFORMATION
  Report Type: Spontaneous
  Country: US (occurrence: US)
  Receive Date: 20201022
  Receipt Date: 20201022
  Transmission Date: 20210114
  Serious: Yes (Death, Life-Threatening)
  Sender: FDA-Public Use
  Company Number: US-PFIZER INC-2020408565

PATIENT
  Age: 45 Year
  Sex: Male

DRUGS (4)
  1. RASBURICASE [Suspect]
     Active Substance: RASBURICASE
     Indication: METABOLIC ACIDOSIS
  2. SODIUM BICARBONATE. [Suspect]
     Active Substance: SODIUM BICARBONATE
     Indication: ELECTROLYTE IMBALANCE
     Dosage: UNK
  3. SODIUM BICARBONATE. [Suspect]
     Active Substance: SODIUM BICARBONATE
     Indication: METABOLIC ACIDOSIS
  4. RASBURICASE [Suspect]
     Active Substance: RASBURICASE
     Indication: ELECTROLYTE IMBALANCE
     Dosage: UNK

REACTIONS (8)
  - Metabolic encephalopathy [Fatal]
  - Treatment failure [Fatal]
  - Coagulopathy [Fatal]
  - Multiple organ dysfunction syndrome [Fatal]
  - Transaminases increased [Fatal]
  - Acute hepatic failure [Fatal]
  - Shock [Fatal]
  - Tumour lysis syndrome [Fatal]
